FAERS Safety Report 7324033-0 (Version None)
Quarter: 2011Q1

REPORT INFORMATION
  Report Type: 
  Country: None (occurrence: None)
  Receive Date: 20110301
  Receipt Date: 20110120
  Transmission Date: 20110831
  Serious: Yes (Hospitalization, Other)
  Sender: FDA-Public Use
  Company Number: US-BAYER-201038649NA

PATIENT
  Sex: Female
  Weight: 129.25 kg

DRUGS (5)
  1. YASMIN [Suspect]
     Indication: PRODUCT USED FOR UNKNOWN INDICATION
     Dosage: UNK
     Route: 048
     Dates: start: 20040101
  2. FAMOTIDINE [Concomitant]
  3. FLUOXETINE [Concomitant]
  4. HYDROCHLOROTHIAZIDE [Concomitant]
  5. VICODIN [Concomitant]

REACTIONS (7)
  - VOMITING [None]
  - BILE DUCT STONE [None]
  - JAUNDICE [None]
  - BILE DUCT OBSTRUCTION [None]
  - ABDOMINAL TENDERNESS [None]
  - ABDOMINAL PAIN [None]
  - CHOLECYSTITIS [None]
